FAERS Safety Report 6486699-7 (Version None)
Quarter: 2009Q4

REPORT INFORMATION
  Report Type: 
  Country: None (occurrence: None)
  Receive Date: 20091123
  Receipt Date: 20090916
  Transmission Date: 20100525
  Serious: No
  Sender: FDA-Public Use
  Company Number: 8052169

PATIENT
  Age: 49 Year
  Sex: Female
  Weight: 70.76 kg

DRUGS (7)
  1. CIMZIA [Suspect]
     Indication: CROHN'S DISEASE
     Dosage: 400 MG /M SC
     Route: 058
     Dates: start: 20090301
  2. LOMOTIL [Concomitant]
  3. QUESTRAN [Concomitant]
  4. VITAMIN D [Concomitant]
  5. ACTONEL [Concomitant]
  6. NASCOBAL [Concomitant]
  7. MULTIVIIT + CA [Concomitant]

REACTIONS (1)
  - URINARY TRACT INFECTION [None]
